FAERS Safety Report 7137227-4 (Version None)
Quarter: 2010Q4

REPORT INFORMATION
  Report Type: 
  Country: None (occurrence: None)
  Receive Date: 20101206
  Receipt Date: 20101124
  Transmission Date: 20110411
  Serious: Yes (Other)
  Sender: FDA-Public Use
  Company Number: US-JNJFOC-20101006553

PATIENT
  Sex: Male

DRUGS (1)
  1. MOTRIN [Suspect]
     Indication: PRODUCT USED FOR UNKNOWN INDICATION

REACTIONS (3)
  - BARRETT'S OESOPHAGUS [None]
  - BLOOD URINE PRESENT [None]
  - PRODUCT QUALITY ISSUE [None]
